FAERS Safety Report 16775530 (Version 1)
Quarter: 2019Q3

REPORT INFORMATION
  Report Type: Spontaneous
  Country: US (occurrence: US)
  Receive Date: 20190905
  Receipt Date: 20190905
  Transmission Date: 20191005
  Serious: Yes (Hospitalization)
  Sender: FDA-Public Use
  Company Number: US-PERRIGO-19US010460

PATIENT
  Age: 17 Year
  Sex: Male
  Weight: 61 kg

DRUGS (2)
  1. IBUPROFEN. [Suspect]
     Active Substance: IBUPROFEN
     Indication: INTENTIONAL OVERDOSE
     Dosage: APPROXIMATELY 8000 MG, SINGLE
     Route: 048
  2. METHOTREXATE. [Suspect]
     Active Substance: METHOTREXATE
     Indication: INTENTIONAL OVERDOSE
     Dosage: 30 TO 40 TABLETS, SINGLE
     Route: 048

REACTIONS (3)
  - Transaminases increased [Recovered/Resolved]
  - Drug interaction [Recovered/Resolved]
  - Intentional overdose [Recovered/Resolved]
